FAERS Safety Report 6684877-5 (Version None)
Quarter: 2010Q2

REPORT INFORMATION
  Report Type: 
  Country: None (occurrence: None)
  Receive Date: 20100416
  Receipt Date: 20100405
  Transmission Date: 20101027
  Serious: Yes (Hospitalization)
  Sender: FDA-Public Use
  Company Number: US-MERCK-1003USA04061

PATIENT
  Age: 72 Year
  Sex: Male

DRUGS (6)
  1. ZOLINZA [Suspect]
     Indication: MYCOSIS FUNGOIDES
     Route: 048
     Dates: start: 20090520
  2. ZOLINZA [Suspect]
     Route: 048
  3. ZOLINZA [Suspect]
     Route: 048
     Dates: end: 20100301
  4. TARGRETIN [Concomitant]
     Route: 065
  5. LYRICA [Concomitant]
     Route: 065
  6. ZOCOR [Concomitant]
     Route: 048

REACTIONS (25)
  - ABDOMINAL DISTENSION [None]
  - ANAEMIA [None]
  - ASTHENIA [None]
  - BALANCE DISORDER [None]
  - BICYTOPENIA [None]
  - CONSTIPATION [None]
  - DECREASED APPETITE [None]
  - DIARRHOEA [None]
  - DIZZINESS [None]
  - DYSPHAGIA [None]
  - FALL [None]
  - FATIGUE [None]
  - FLATULENCE [None]
  - GASTRIC ULCER [None]
  - LIMB INJURY [None]
  - LUNG INFECTION [None]
  - OEDEMA PERIPHERAL [None]
  - OESOPHAGEAL CANDIDIASIS [None]
  - PNEUMONIA [None]
  - PYODERMA GANGRENOSUM [None]
  - SKIN LACERATION [None]
  - SMALL INTESTINAL OBSTRUCTION [None]
  - STAPHYLOCOCCAL SEPSIS [None]
  - SYNCOPE [None]
  - THROMBOCYTOPENIA [None]
